FAERS Safety Report 6288425-3 (Version None)
Quarter: 2009Q3

REPORT INFORMATION
  Report Type: 
  Country: None (occurrence: None)
  Receive Date: 20090729
  Receipt Date: 20090720
  Transmission Date: 20100115
  Serious: Yes (Life-Threatening, Hospitalization, Other)
  Sender: FDA-Public Use
  Company Number: A0798952A

PATIENT
  Sex: Male

DRUGS (4)
  1. AVANDIA [Suspect]
     Indication: DIABETES MELLITUS
     Dosage: 8MG PER DAY
     Route: 065
     Dates: start: 20090525, end: 20090501
  2. CO-APROVEL [Suspect]
     Indication: HYPERTENSION
     Dosage: 150MG PER DAY
     Dates: start: 20040101
  3. LOVASTATIN [Suspect]
     Indication: DRUG USE FOR UNKNOWN INDICATION
     Dosage: 20MG TWICE PER DAY
     Route: 065
  4. GLYBURIDE [Concomitant]
     Dosage: 5MG TWICE PER DAY
     Route: 065
     Dates: start: 20090525

REACTIONS (1)
  - HYPOGLYCAEMIA [None]
